FAERS Safety Report 11950996 (Version 2)
Quarter: 2016Q1

REPORT INFORMATION
  Report Type: Report from Study
  Country: CA (occurrence: CA)
  Receive Date: 20160126
  Receipt Date: 20160126
  Transmission Date: 20160526
  Serious: Yes (Hospitalization, Other)
  Sender: FDA-Public Use
  Company Number: CA-ROCHE-1137914

PATIENT
  Age: 65 Year
  Sex: Female
  Weight: 117.5 kg

DRUGS (22)
  1. ACTONEL [Concomitant]
     Active Substance: RISEDRONATE SODIUM
  2. TRAZODONE [Concomitant]
     Active Substance: TRAZODONE HYDROCHLORIDE
  3. RAMIPRIL. [Concomitant]
     Active Substance: RAMIPRIL
  4. ACETAMINOPHEN. [Concomitant]
     Active Substance: ACETAMINOPHEN
     Indication: PREMEDICATION
     Dosage: ON 06/OCT/2011, RECEIVED NEXT DOSE
     Route: 048
     Dates: start: 20111027
  5. CODEINE [Concomitant]
     Active Substance: CODEINE
  6. GLIBENCLAMIDE [Concomitant]
     Active Substance: GLYBURIDE
  7. SULFAMETHOXAZOLE [Concomitant]
     Active Substance: SULFAMETHOXAZOLE
  8. RITUXAN [Suspect]
     Active Substance: RITUXIMAB
     Indication: RHEUMATOID ARTHRITIS
     Dosage: MOST RECENT DOSE OF RITUXIMAB WAS RECIEVED ON 11/SEP/2013.?MOST RECENT RITUXIMAB INFUSION WAS RECEIV
     Route: 042
     Dates: start: 20111006
  9. HYDROXYCHLOROQUINE [Concomitant]
     Active Substance: HYDROXYCHLOROQUINE
  10. STEMETIL [Concomitant]
     Active Substance: PROCHLORPERAZINE MALEATE
  11. GLYBURIDE. [Concomitant]
     Active Substance: GLYBURIDE
  12. PREDNISONE. [Concomitant]
     Active Substance: PREDNISONE
  13. DIPHENHYDRAMINE HCL [Concomitant]
     Active Substance: DIPHENHYDRAMINE HYDROCHLORIDE
     Indication: PREMEDICATION
     Route: 048
     Dates: start: 20111027, end: 20111027
  14. ACTONEL [Concomitant]
     Active Substance: RISEDRONATE SODIUM
  15. COZAAR [Concomitant]
     Active Substance: LOSARTAN POTASSIUM
  16. LASIX [Concomitant]
     Active Substance: FUROSEMIDE
  17. METHYLPREDNISOLONE. [Concomitant]
     Active Substance: METHYLPREDNISOLONE
     Indication: PREMEDICATION
     Dosage: ON 06/OCT/2011, RECEIVED NEXT DOSE
     Route: 042
     Dates: start: 20111027
  18. OMEPRAZOLE. [Concomitant]
     Active Substance: OMEPRAZOLE
  19. METFORMIN [Concomitant]
     Active Substance: METFORMIN HYDROCHLORIDE
  20. LOSARTAN POTASSIUM. [Concomitant]
     Active Substance: LOSARTAN POTASSIUM
  21. SULFASALAZINE. [Concomitant]
     Active Substance: SULFASALAZINE
  22. DIPHENHYDRAMINE HCL [Concomitant]
     Active Substance: DIPHENHYDRAMINE HYDROCHLORIDE
     Route: 048
     Dates: start: 20111006

REACTIONS (9)
  - Diarrhoea [Not Recovered/Not Resolved]
  - Foot fracture [Not Recovered/Not Resolved]
  - Lower respiratory tract infection [Recovering/Resolving]
  - Rheumatoid arthritis [Not Recovered/Not Resolved]
  - Chronic obstructive pulmonary disease [Not Recovered/Not Resolved]
  - Joint swelling [Unknown]
  - Productive cough [Not Recovered/Not Resolved]
  - Nasopharyngitis [Not Recovered/Not Resolved]
  - Blood pressure increased [Unknown]

NARRATIVE: CASE EVENT DATE: 20120731
